FAERS Safety Report 25879572 (Version 1)
Quarter: 2025Q4

REPORT INFORMATION
  Report Type: Spontaneous
  Country: EU (occurrence: EU)
  Receive Date: 20251003
  Receipt Date: 20251003
  Transmission Date: 20260118
  Serious: Yes (Life-Threatening, Hospitalization, Other)
  Sender: ETHYPHARM
  Company Number: None

PATIENT
  Age: 55 Year
  Sex: Male

DRUGS (23)
  1. MORPHINE SULFATE [Suspect]
     Active Substance: MORPHINE SULFATE
     Indication: Pain
     Dosage: 1 DF, BID
     Route: 048
     Dates: start: 20230210, end: 20230218
  2. SKENAN [Suspect]
     Active Substance: MORPHINE SULFATE
     Indication: Pain
     Dosage: 30 MG BID (1 CP SKENAN LP30MG TOUTES LES 12H)
     Route: 048
     Dates: start: 20230210, end: 20230218
  3. ACETAMINOPHEN [Suspect]
     Active Substance: ACETAMINOPHEN
     Indication: Pain
     Dosage: 1 DF, Q6H (1 TABLET Q6H, MAXIMUM?3 TA BLETS/D)
     Route: 048
     Dates: start: 20230211
  4. NALOXEGOL OXALATE [Suspect]
     Active Substance: NALOXEGOL OXALATE
     Indication: Constipation
     Dosage: 25 MILLIGRAM, PRN (IF NECESSARY)
     Route: 048
     Dates: start: 20230211
  5. CILASTATIN SODIUM\IMIPENEM [Suspect]
     Active Substance: CILASTATIN SODIUM\IMIPENEM
     Indication: Bacterial infection
     Dosage: 1 INJECTION (800 MG) PER DAY
     Route: 042
     Dates: start: 20230114, end: 20230208
  6. DOXORUBICIN [Suspect]
     Active Substance: DOXORUBICIN
     Indication: Diffuse large B-cell lymphoma
     Dosage: 1 CURE
     Dates: start: 20221227
  7. BACTRIM [Suspect]
     Active Substance: SULFAMETHOXAZOLE\TRIMETHOPRIM
     Indication: Bacterial infection
     Dosage: 400 MILLIGRAM, QD (1 DF, 1 TAB IN THE MORNING)
     Route: 048
     Dates: start: 20230106, end: 20230303
  8. LOVENOX [Suspect]
     Active Substance: ENOXAPARIN SODIUM
     Indication: Prophylaxis
     Route: 058
     Dates: start: 20230210
  9. CASPOFUNGIN ACETATE [Suspect]
     Active Substance: CASPOFUNGIN ACETATE
     Indication: Fungal infection
     Route: 042
     Dates: start: 20230126
  10. METRONIDAZOLE [Suspect]
     Active Substance: METRONIDAZOLE
     Indication: Bacterial infection
     Dosage: 500 MG MORNING, MIDDAY AND EVENING
     Route: 048
     Dates: start: 20230209, end: 20230303
  11. RITUXIMAB [Suspect]
     Active Substance: RITUXIMAB
     Indication: Diffuse large B-cell lymphoma
     Dosage: 1 CURE
     Dates: start: 20221227
  12. CIPROFLOXACIN [Suspect]
     Active Substance: CIPROFLOXACIN
     Indication: Bacterial infection
     Dosage: UNK
     Dates: start: 20230203, end: 20230208
  13. VINCRISTINE SULFATE [Suspect]
     Active Substance: VINCRISTINE SULFATE
     Indication: Diffuse large B-cell lymphoma
     Dosage: 1 CURE
     Dates: start: 20221227
  14. VALACYCLOVIR HYDROCHLORIDE [Suspect]
     Active Substance: VALACYCLOVIR HYDROCHLORIDE
     Indication: Bacterial infection
     Dosage: 500MG MATIN ET SOIR
     Route: 048
     Dates: start: 20230106
  15. AMITRIPTYLINE HYDROCHLORIDE [Suspect]
     Active Substance: AMITRIPTYLINE HYDROCHLORIDE
     Indication: Pain
     Dosage: 1/12 MILLILITRE PER DAY 35 GTT DROPS, 5 DROP MOR, 10 DROP MIDDAY AND EVEN
     Route: 048
     Dates: start: 20221210
  16. LEUCOVORIN CALCIUM [Suspect]
     Active Substance: LEUCOVORIN CALCIUM
     Indication: Prophylaxis
     Dosage: 2 DF, 0.5 WEEK (A TAB EVERY MONDAY AND THURSDAY)
     Route: 048
     Dates: start: 20230102
  17. DAPTOMYCIN [Suspect]
     Active Substance: DAPTOMYCIN
     Indication: Bacterial infection
     Route: 042
     Dates: start: 20230211, end: 20230306
  18. ACUPAN [Suspect]
     Active Substance: NEFOPAM HYDROCHLORIDE
     Indication: Pain
     Dosage: ONE AMPOULE EVERY 4 HOURS IF PAIN
     Route: 048
     Dates: start: 20230106, end: 20230302
  19. ARANESP [Suspect]
     Active Substance: DARBEPOETIN ALFA
     Indication: Anaemia
     Dosage: 1 DOSAGE?FORM, QW?(300?MICROGRAM?PER GRAM)
     Route: 058
     Dates: start: 20230213
  20. CEFTRIAXONE [Suspect]
     Active Substance: CEFTRIAXONE
     Indication: Bacterial infection
     Dosage: 1 G MORNING AND EVENING
     Route: 048
     Dates: start: 20230209
  21. PANTOPRAZOLE [Suspect]
     Active Substance: PANTOPRAZOLE
     Indication: Gastritis prophylaxis
     Route: 048
     Dates: start: 20230106
  22. CYCLOPHOSPHAMIDE [Suspect]
     Active Substance: CYCLOPHOSPHAMIDE
     Indication: Diffuse large B-cell lymphoma
     Dosage: 1 CURE
     Dates: start: 20221227
  23. ALPRAZOLAM [Suspect]
     Active Substance: ALPRAZOLAM
     Indication: Anxiety
     Dosage: 1 TAB 0.25MG IF ANXIETY
     Route: 048
     Dates: start: 20230106, end: 20230209

REACTIONS (1)
  - Agranulocytosis [Recovered/Resolved]

NARRATIVE: CASE EVENT DATE: 20230201
